FAERS Safety Report 18005233 (Version 5)
Quarter: 2020Q4

REPORT INFORMATION
  Report Type: Report from Study
  Country: US (occurrence: US)
  Receive Date: 20200710
  Receipt Date: 20201203
  Transmission Date: 20210113
  Serious: No
  Sender: FDA-Public Use
  Company Number: US-BIOVITRUM-2020US3278

PATIENT
  Age: 83 Year
  Sex: Female

DRUGS (9)
  1. PREDNISONE. [Concomitant]
     Active Substance: PREDNISONE
  2. IMURAN [Concomitant]
     Active Substance: AZATHIOPRINE
  3. KINERET [Suspect]
     Active Substance: ANAKINRA
     Indication: RHEUMATOID ARTHRITIS
     Route: 058
     Dates: start: 20200527
  4. PREVACID [Concomitant]
     Active Substance: LANSOPRAZOLE
  5. METOPROLOL. [Concomitant]
     Active Substance: METOPROLOL
  6. METHANAMINE [Concomitant]
  7. KINERET [Suspect]
     Active Substance: ANAKINRA
     Indication: SJOGREN^S SYNDROME
  8. KINERET [Suspect]
     Active Substance: ANAKINRA
     Indication: LE CELLS
     Route: 058
     Dates: start: 20200528
  9. LEVOTHYROXINE. [Concomitant]
     Active Substance: LEVOTHYROXINE

REACTIONS (13)
  - Asthenia [Unknown]
  - Fatigue [Unknown]
  - Skin ulcer [Unknown]
  - Syringe issue [Unknown]
  - Myalgia [Unknown]
  - Pain [Unknown]
  - Injection site pain [Unknown]
  - Discomfort [Unknown]
  - Erythema [Unknown]
  - Dyspnoea [Unknown]
  - Swelling [Unknown]
  - Injection site bruising [Unknown]
  - Off label use [Unknown]

NARRATIVE: CASE EVENT DATE: 20200527
